FAERS Safety Report 19240069 (Version 2)
Quarter: 2021Q2

REPORT INFORMATION
  Report Type: Report from Study
  Country: IN (occurrence: IN)
  Receive Date: 20210510
  Receipt Date: 20210522
  Transmission Date: 20210717
  Serious: Yes (Other)
  Sender: FDA-Public Use
  Company Number: NVSC2021IN085087

PATIENT
  Age: 48 Year
  Sex: Female

DRUGS (1)
  1. VYMADA [Suspect]
     Active Substance: SACUBITRIL\VALSARTAN
     Indication: PRODUCT USED FOR UNKNOWN INDICATION
     Dosage: 50 MG, BID
     Route: 048
     Dates: start: 20210203

REACTIONS (6)
  - Oedema peripheral [Not Recovered/Not Resolved]
  - Wrong technique in product usage process [Unknown]
  - Cough [Not Recovered/Not Resolved]
  - Gait disturbance [Unknown]
  - Cardiac failure chronic [Not Recovered/Not Resolved]
  - Insomnia [Not Recovered/Not Resolved]

NARRATIVE: CASE EVENT DATE: 20210203
